FAERS Safety Report 17941549 (Version 2)
Quarter: 2020Q4

REPORT INFORMATION
  Report Type: Report from Study
  Country: BR (occurrence: BR)
  Receive Date: 20200624
  Receipt Date: 20201219
  Transmission Date: 20210113
  Serious: Yes (Other)
  Sender: FDA-Public Use
  Company Number: NVSC2020BR061670

PATIENT
  Age: 53 Year
  Sex: Female

DRUGS (3)
  1. COSENTYX [Suspect]
     Active Substance: SECUKINUMAB
     Dosage: 150 MG
     Route: 065
     Dates: start: 20200605
  2. COSENTYX [Suspect]
     Active Substance: SECUKINUMAB
     Indication: ANKYLOSING SPONDYLITIS
     Dosage: 150 MG
     Route: 065
     Dates: start: 20180813
  3. COSENTYX [Suspect]
     Active Substance: SECUKINUMAB
     Dosage: 150 MG
     Route: 065

REACTIONS (19)
  - Pharyngitis [Recovering/Resolving]
  - Seasonal allergy [Recovered/Resolved]
  - Decreased appetite [Recovering/Resolving]
  - Laryngitis [Recovering/Resolving]
  - Purulent discharge [Unknown]
  - Decreased immune responsiveness [Not Recovered/Not Resolved]
  - Sneezing [Recovered/Resolved]
  - Memory impairment [Unknown]
  - Bacterial infection [Recovering/Resolving]
  - Oropharyngeal pain [Recovered/Resolved]
  - Dizziness [Unknown]
  - Asthenia [Recovered/Resolved]
  - Throat irritation [Unknown]
  - Pain [Unknown]
  - Tongue disorder [Not Recovered/Not Resolved]
  - Malaise [Unknown]
  - Pyrexia [Recovered/Resolved]
  - Dysphagia [Unknown]
  - Nausea [Unknown]

NARRATIVE: CASE EVENT DATE: 20200211
